FAERS Safety Report 9796917 (Version 1)
Quarter: 2014Q1

REPORT INFORMATION
  Report Type: Spontaneous
  Country: US (occurrence: None)
  Receive Date: 20140102
  Receipt Date: 20140102
  Transmission Date: 20141002
  Serious: Yes (Hospitalization, Disabling)
  Sender: FDA-Public Use
  Company Number: None

PATIENT
  Age: 19 Year
  Sex: Female
  Weight: 43.09 kg

DRUGS (1)
  1. MIRENA IUD [Suspect]
     Dates: start: 20130402

REACTIONS (9)
  - Abdominal pain [None]
  - Gastritis [None]
  - Ulcer [None]
  - General physical health deterioration [None]
  - Vertigo [None]
  - Aphagia [None]
  - Weight decreased [None]
  - Vomiting [None]
  - Activities of daily living impaired [None]
